FAERS Safety Report 4283329-X (Version None)
Quarter: 2004Q1

REPORT INFORMATION
  Report Type: 
  Country: None (occurrence: None)
  Receive Date: 20040122
  Receipt Date: 20040107
  Transmission Date: 20041129
  Serious: Yes (Death)
  Sender: FDA-Public Use
  Company Number: 234443

PATIENT
  Sex: Male

DRUGS (5)
  1. NOVOSEVEN [Suspect]
     Indication: HAEMORRHAGE
     Dosage: 90 UG/KG X 2 DOSES - 1 HR APART, UNK
  2. RED BLOOD CELLS [Concomitant]
  3. PLASMA, FRESH FROZEN (PLASMA PROTEIN) [Concomitant]
  4. FRACTION (HUMAN) [Concomitant]
  5. PLATELETS [Concomitant]

REACTIONS (3)
  - INTRACARDIAC THROMBUS [None]
  - PROCEDURAL COMPLICATION [None]
  - THROMBOSIS [None]
